FAERS Safety Report 18941963 (Version 2)
Quarter: 2021Q3

REPORT INFORMATION
  Report Type: Spontaneous
  Country: US (occurrence: US)
  Receive Date: 20210225
  Receipt Date: 20210826
  Transmission Date: 20211014
  Serious: No
  Sender: FDA-Public Use
  Company Number: US-SA-2021SA062956

PATIENT
  Sex: Female

DRUGS (10)
  1. DALFAMPRIDINE. [Concomitant]
     Active Substance: DALFAMPRIDINE
  2. VITAMIN D3 [Concomitant]
     Active Substance: CHOLECALCIFEROL
  3. AUBAGIO [Suspect]
     Active Substance: TERIFLUNOMIDE
     Indication: MULTIPLE SCLEROSIS
     Dosage: 14 MG, QD
     Route: 048
     Dates: start: 2014
  4. ASPIRIN EC [Concomitant]
     Active Substance: ASPIRIN
  5. BUPROPION HCL [Concomitant]
     Active Substance: BUPROPION HYDROCHLORIDE
  6. MULTIVITAMINS [VITAMINS NOS] [Concomitant]
     Active Substance: VITAMINS
  7. ZINC. [Concomitant]
     Active Substance: ZINC
  8. BIOTIN [Concomitant]
     Active Substance: BIOTIN
  9. VITAMIN C [Concomitant]
     Active Substance: ASCORBIC ACID
  10. MELATONIN [Concomitant]
     Active Substance: MELATONIN

REACTIONS (7)
  - Feeling abnormal [Unknown]
  - Nasopharyngitis [Unknown]
  - Hormone level abnormal [Unknown]
  - Fatigue [Unknown]
  - Alopecia [Not Recovered/Not Resolved]
  - Depression [Not Recovered/Not Resolved]
  - Depressed mood [Not Recovered/Not Resolved]
